FAERS Safety Report 22300641 (Version 1)
Quarter: 2023Q2

REPORT INFORMATION
  Report Type: Spontaneous
  Country: US (occurrence: US)
  Receive Date: 20230509
  Receipt Date: 20230509
  Transmission Date: 20230721
  Serious: Yes (Disabling, Other)
  Sender: FDA-Public Use
  Company Number: US-009507513-2305USA001660

PATIENT
  Age: 46 Year
  Sex: Female

DRUGS (7)
  1. DIFICID [Suspect]
     Active Substance: FIDAXOMICIN
     Indication: Clostridium difficile infection
     Dosage: 200MG, 1 TABLET, BY MOUTH, TWICE A DAY FOR 10 DAYS
     Route: 048
     Dates: start: 20221220, end: 20221230
  2. AMITRIPTYLINE [Concomitant]
     Active Substance: AMITRIPTYLINE
  3. AMLODIPINE [Concomitant]
     Active Substance: AMLODIPINE BESYLATE
  4. BUSPIRONE [Concomitant]
     Active Substance: BUSPIRONE HYDROCHLORIDE
  5. HUMIRA [Concomitant]
     Active Substance: ADALIMUMAB
  6. PREDNISONE [Concomitant]
     Active Substance: PREDNISONE
  7. VIBERZI [Concomitant]
     Active Substance: ELUXADOLINE

REACTIONS (1)
  - Clostridium difficile infection [Not Recovered/Not Resolved]

NARRATIVE: CASE EVENT DATE: 20230502
